FAERS Safety Report 13469879 (Version 4)
Quarter: 2017Q3

REPORT INFORMATION
  Report Type: Report from Study
  Country: None (occurrence: BE)
  Receive Date: 20170422
  Receipt Date: 20170906
  Transmission Date: 20171127
  Serious: Yes (Hospitalization)
  Sender: FDA-Public Use
  Company Number: BE-ABBVIE-17K-013-1951565-00

PATIENT
  Sex: Male

DRUGS (11)
  1. ANDROCUR [Concomitant]
     Active Substance: CYPROTERONE ACETATE
     Indication: PRODUCT USED FOR UNKNOWN INDICATION
  2. CORUNO [Concomitant]
     Active Substance: MOLSIDOMINE
     Indication: PRODUCT USED FOR UNKNOWN INDICATION
  3. PLAVIX [Concomitant]
     Active Substance: CLOPIDOGREL BISULFATE
     Indication: PRODUCT USED FOR UNKNOWN INDICATION
  4. ASAFLOW [Concomitant]
     Active Substance: ASPIRIN
     Indication: PRODUCT USED FOR UNKNOWN INDICATION
  5. DUODOPA [Suspect]
     Active Substance: CARBIDOPA\LEVODOPA
     Dosage: AM: 4ML; CD: 2.1ML/H FOR 16HRS; ED: 1.5ML
     Route: 050
     Dates: start: 20161209, end: 20170505
  6. DUODOPA [Suspect]
     Active Substance: CARBIDOPA\LEVODOPA
     Dosage: DOSAGES CONTINUOUSLY MONITORED AND ADJUSTED
     Route: 050
     Dates: start: 20160202, end: 20161209
  7. ALDACTAZINE [Concomitant]
     Active Substance: ALTHIAZIDE\SPIRONOLACTONE
     Indication: PRODUCT USED FOR UNKNOWN INDICATION
  8. DUODOPA [Suspect]
     Active Substance: CARBIDOPA\LEVODOPA
     Indication: PARKINSON^S DISEASE
     Dosage: AM: 6ML; CD: 2.3ML/H FOR 16HRS; ED: 1ML
     Route: 050
     Dates: start: 20160201, end: 20160202
  9. DUODOPA [Suspect]
     Active Substance: CARBIDOPA\LEVODOPA
     Dosage: AM: 4 ML CD: 1.7 ML/HR DURING 16 HRS ED: 1.5 ML
     Route: 050
     Dates: start: 20170508, end: 20170607
  10. DUODOPA [Suspect]
     Active Substance: CARBIDOPA\LEVODOPA
     Dosage: MD= 4 ML; CD= 1.8 ML/H DURING 16 HRS; EDA= 1.5 ML
     Route: 050
     Dates: start: 20170607
  11. DUODOPA [Suspect]
     Active Substance: CARBIDOPA\LEVODOPA
     Dosage: AM=4ML CD=1.9ML/HR DURING 16HRS ED=1.5ML
     Route: 050
     Dates: start: 20170505, end: 20170508

REACTIONS (2)
  - Dyskinesia [Recovering/Resolving]
  - Cardiac disorder [Recovering/Resolving]
